FAERS Safety Report 15568865 (Version 1)
Quarter: 2018Q4

REPORT INFORMATION
  Report Type: Spontaneous
  Country: US (occurrence: US)
  Receive Date: 20181031
  Receipt Date: 20181031
  Transmission Date: 20190205
  Serious: Yes (Other)
  Sender: FDA-Public Use
  Company Number: US-ROCHE-2207243

PATIENT
  Age: 74 Year
  Sex: Male
  Weight: 63.56 kg

DRUGS (5)
  1. ERIVEDGE [Suspect]
     Active Substance: VISMODEGIB
     Indication: BASAL CELL CARCINOMA
  2. COUMADIN [Concomitant]
     Active Substance: WARFARIN SODIUM
     Dosage: TAKING FOR 20 YEARS ; FOR ARTIFICIAL MECHANICAL HEART VALVE
     Route: 065
  3. ERIVEDGE [Suspect]
     Active Substance: VISMODEGIB
     Indication: BASAL CELL CARCINOMA
     Dosage: RECEIVED 2 BOXES OF SAMPLES FROM DOCTOR;
     Route: 048
     Dates: start: 201802, end: 20180407
  4. ACETAMINOPHEN. [Concomitant]
     Active Substance: ACETAMINOPHEN
     Indication: NECK PAIN
     Route: 065
  5. GABAPENTIN. [Concomitant]
     Active Substance: GABAPENTIN
     Indication: NECK PAIN
     Dosage: TAKING FOR THREE YEARS ;
     Route: 065

REACTIONS (7)
  - Basal cell carcinoma [Not Recovered/Not Resolved]
  - Ageusia [Not Recovered/Not Resolved]
  - Alopecia [Recovered/Resolved]
  - Muscle spasms [Not Recovered/Not Resolved]
  - Vision blurred [Recovered/Resolved]
  - Weight decreased [Not Recovered/Not Resolved]
  - Expired product administered [Unknown]

NARRATIVE: CASE EVENT DATE: 201802
